FAERS Safety Report 15149558 (Version 2)
Quarter: 2018Q3

REPORT INFORMATION
  Report Type: Spontaneous
  Country: JP (occurrence: JP)
  Receive Date: 20180716
  Receipt Date: 20180720
  Transmission Date: 20181010
  Serious: Yes (Other)
  Sender: FDA-Public Use
  Company Number: JP-ALLERGAN-1835371US

PATIENT
  Age: 50 Year
  Sex: Female

DRUGS (6)
  1. PREGABALIN. [Suspect]
     Active Substance: PREGABALIN
     Indication: FIBROMYALGIA
  2. DULOXETINE. [Suspect]
     Active Substance: DULOXETINE
     Indication: POLYMYALGIA RHEUMATICA
     Dosage: UNK
     Route: 048
  3. DULOXETINE. [Suspect]
     Active Substance: DULOXETINE
     Indication: FIBROMYALGIA
  4. PREGABALIN. [Suspect]
     Active Substance: PREGABALIN
     Indication: POLYMYALGIA RHEUMATICA
     Dosage: UNK
     Route: 048
  5. MILNACIPRAN ? BP [Suspect]
     Active Substance: MILNACIPRAN
     Indication: FIBROMYALGIA
  6. MILNACIPRAN ? BP [Suspect]
     Active Substance: MILNACIPRAN
     Indication: POLYMYALGIA RHEUMATICA
     Dosage: UNK
     Route: 048

REACTIONS (5)
  - Amnesia [Unknown]
  - Dizziness [Unknown]
  - Nausea [Unknown]
  - Temporal lobe epilepsy [Recovered/Resolved]
  - Off label use [Unknown]
